FAERS Safety Report 8599497-5 (Version None)
Quarter: 2012Q3

REPORT INFORMATION
  Report Type: 
  Country: None (occurrence: None)
  Receive Date: 20120816
  Receipt Date: 20120530
  Transmission Date: 20120928
  Serious: No
  Sender: FDA-Public Use
  Company Number: US-ALLERGAN-1207597US

PATIENT
  Age: 72 Year
  Sex: Female

DRUGS (5)
  1. ASPIRIN [Concomitant]
     Indication: PROPHYLAXIS
     Dosage: 81 MG, QD
     Route: 048
  2. CALCIUM PLUS D3 [Concomitant]
     Indication: SUPPLEMENTATION THERAPY
     Dosage: UNK
     Route: 048
  3. PRAVACHOL [Concomitant]
     Indication: BLOOD CHOLESTEROL INCREASED
     Dosage: UNK
     Route: 048
  4. PROCARDIA [Concomitant]
     Indication: HYPERTENSION
     Dosage: UNK
     Route: 048
  5. LASTACAFT [Suspect]
     Indication: SCLERAL HYPERAEMIA
     Dosage: 2 GTT, UNK
     Route: 047
     Dates: start: 20120516

REACTIONS (5)
  - THERAPEUTIC RESPONSE UNEXPECTED [None]
  - ABNORMAL SENSATION IN EYE [None]
  - EYE IRRITATION [None]
  - DRUG INEFFECTIVE [None]
  - ASTHENOPIA [None]
